FAERS Safety Report 8541039-4 (Version None)
Quarter: 2012Q3

REPORT INFORMATION
  Report Type: 
  Country: None (occurrence: None)
  Receive Date: 20120726
  Receipt Date: 20110815
  Transmission Date: 20120928
  Serious: No
  Sender: FDA-Public Use
  Company Number: US-ASTRAZENECA-2011SE49155

PATIENT
  Age: 39 Year
  Sex: Male

DRUGS (2)
  1. SEROQUEL [Suspect]
     Indication: INSOMNIA
     Route: 048
  2. SEROQUEL [Suspect]
     Dosage: FOUR TABLETS
     Route: 048

REACTIONS (3)
  - OFF LABEL USE [None]
  - INSOMNIA [None]
  - INCORRECT DOSE ADMINISTERED [None]
